FAERS Safety Report 7141107-8 (Version None)
Quarter: 2010Q4

REPORT INFORMATION
  Report Type: 
  Country: None (occurrence: None)
  Receive Date: 20101122
  Receipt Date: 20101110
  Transmission Date: 20110411
  Serious: Yes (Death, Hospitalization)
  Sender: FDA-Public Use
  Company Number: 2010P1002510

PATIENT
  Age: 65 Year
  Sex: Female

DRUGS (7)
  1. COLCHICINE [Suspect]
     Indication: PERICARDITIS
     Dosage: 1 MG; QD; PO
     Route: 048
  2. AMIODARONE (NO PREF. NAME) [Suspect]
     Indication: ATRIAL FIBRILLATION
     Dosage: 200 MG; 5X/WEEK; PO
     Route: 048
  3. ACENOCOUMAROL [Concomitant]
  4. CAPTOPRIL [Concomitant]
  5. FUROSEMIDE [Concomitant]
  6. MOLSIDOMINE [Concomitant]
  7. SPIRONOLACTONE [Concomitant]

REACTIONS (5)
  - EPISTAXIS [None]
  - INTERNATIONAL NORMALISED RATIO INCREASED [None]
  - MELAENA [None]
  - RHABDOMYOLYSIS [None]
  - VENTRICULAR FIBRILLATION [None]
